FAERS Safety Report 21490856 (Version 1)
Quarter: 2022Q4

REPORT INFORMATION
  Report Type: Spontaneous
  Country: DE (occurrence: DE)
  Receive Date: 20221021
  Receipt Date: 20221021
  Transmission Date: 20230113
  Serious: Yes (Other)
  Sender: FDA-Public Use
  Company Number: DE-ALKEM LABORATORIES LIMITED-DE-ALKEM-2022-10413

PATIENT
  Sex: Female
  Weight: 65 kg

DRUGS (3)
  1. FINGOLIMOD [Suspect]
     Active Substance: FINGOLIMOD
     Indication: Multiple sclerosis
     Dosage: 0.5 MILLIGRAM, QD (EVERY 1 DAY) CAPSULE, HARD
     Route: 048
     Dates: start: 20180218
  2. COVID 19 vaccination [Concomitant]
     Indication: Immunisation
     Dosage: DOSE OF 0.3 ML (FIRST COVID19 VACCINATION)
     Route: 065
     Dates: start: 20210602, end: 20210602
  3. COVID 19 vaccination [Concomitant]
     Dosage: DOSE OF 0.3 ML (SECOND COVID19 VACCINATION)
     Route: 065
     Dates: start: 20210714, end: 20210714

REACTIONS (6)
  - Lymphopenia [Recovered/Resolved]
  - Lymphocyte count decreased [Recovering/Resolving]
  - Leukopenia [Recovered/Resolved]
  - White blood cell count decreased [Unknown]
  - Sinusitis [Recovered/Resolved]
  - Nasopharyngitis [Recovered/Resolved]

NARRATIVE: CASE EVENT DATE: 20190320
